FAERS Safety Report 8273353-4 (Version None)
Quarter: 2012Q2

REPORT INFORMATION
  Report Type: 
  Country: None (occurrence: None)
  Receive Date: 20120411
  Receipt Date: 20120403
  Transmission Date: 20120825
  Serious: No
  Sender: FDA-Public Use
  Company Number: PHEH2012US000916

PATIENT
  Sex: Female

DRUGS (3)
  1. ASPIRIN [Concomitant]
     Dosage: 81 MG, DAILY
  2. ALLOPURINOL [Concomitant]
     Dosage: 300 MG, DAILY
     Route: 048
  3. TASIGNA [Suspect]
     Indication: CHRONIC MYELOID LEUKAEMIA
     Dosage: 300 MG, Q12H
     Route: 048
     Dates: start: 20110914

REACTIONS (2)
  - RASH [None]
  - WHITE BLOOD CELL COUNT DECREASED [None]
